FAERS Safety Report 4699437-5 (Version None)
Quarter: 2005Q2

REPORT INFORMATION
  Report Type: 
  Country: None (occurrence: None)
  Receive Date: 20050624
  Receipt Date: 20050614
  Transmission Date: 20051028
  Serious: Yes (Hospitalization)
  Sender: FDA-Public Use
  Company Number: GB-NOVOPROD-244836

PATIENT
  Age: 12 Year
  Sex: Female
  Weight: 60 kg

DRUGS (4)
  1. LEVEMIR [Suspect]
     Indication: DIABETES MELLITUS INSULIN-DEPENDENT
     Dosage: 22 IU, QD
     Route: 058
     Dates: start: 20050602
  2. NOVOMIX 30 [Concomitant]
     Indication: DIABETES MELLITUS INSULIN-DEPENDENT
     Dosage: 26 IU, QD
     Route: 058
     Dates: start: 20050602
  3. NOVORAPID [Concomitant]
     Indication: DIABETES MELLITUS INSULIN-DEPENDENT
     Dosage: 5 IU, QD
     Route: 058
     Dates: start: 20050602
  4. THYROXIN [Concomitant]
     Dosage: 100 UG, QD
     Route: 048
     Dates: start: 20000304

REACTIONS (2)
  - ABDOMINAL PAIN [None]
  - HYPERGLYCAEMIA [None]
